FAERS Safety Report 12440675 (Version 3)
Quarter: 2016Q2

REPORT INFORMATION
  Report Type: Spontaneous
  Country: DE (occurrence: DE)
  Receive Date: 20160606
  Receipt Date: 20160620
  Transmission Date: 20160815
  Serious: Yes (Death, Hospitalization)
  Sender: FDA-Public Use
  Company Number: PHHY2016DE059044

PATIENT
  Age: 57 Year
  Sex: Male
  Weight: 99 kg

DRUGS (2)
  1. EXJADE [Suspect]
     Active Substance: DEFERASIROX
     Indication: MYELODYSPLASTIC SYNDROME
     Dosage: 1500 MG, QD
     Route: 048
     Dates: start: 20150518, end: 20150601
  2. TAMSULOSIN [Concomitant]
     Active Substance: TAMSULOSIN
     Indication: BENIGN PROSTATIC HYPERPLASIA
     Dosage: 0.4 MG, QD
     Route: 048
     Dates: start: 20150101

REACTIONS (16)
  - Rash generalised [Unknown]
  - Genital lesion [Unknown]
  - Myelodysplastic syndrome [Fatal]
  - Malaise [Unknown]
  - Rash [Recovered/Resolved]
  - Renal failure [Fatal]
  - Erythema multiforme [Unknown]
  - Blister [Unknown]
  - Graft versus host disease [Fatal]
  - Infection [Fatal]
  - Chills [Unknown]
  - Post procedural complication [Fatal]
  - Cytomegalovirus colitis [Fatal]
  - Stevens-Johnson syndrome [Unknown]
  - Skin exfoliation [Unknown]
  - Pyrexia [Unknown]

NARRATIVE: CASE EVENT DATE: 20150526
